FAERS Safety Report 11123939 (Version 1)
Quarter: 2015Q2

REPORT INFORMATION
  Report Type: Spontaneous
  Country: DE (occurrence: DE)
  Receive Date: 20150520
  Receipt Date: 20150520
  Transmission Date: 20150821
  Serious: Yes (Other)
  Sender: FDA-Public Use
  Company Number: DE-BEH-2015051044

PATIENT
  Sex: Female

DRUGS (10)
  1. PRIVIGEN [Suspect]
     Active Substance: HUMAN IMMUNOGLOBULIN G
     Route: 042
     Dates: start: 20140722
  2. PRIVIGEN [Suspect]
     Active Substance: HUMAN IMMUNOGLOBULIN G
     Route: 042
     Dates: start: 20141020
  3. PRIVIGEN [Suspect]
     Active Substance: HUMAN IMMUNOGLOBULIN G
     Route: 042
     Dates: start: 20140919
  4. IBU [Concomitant]
     Active Substance: IBUPROFEN
     Dosage: 2X400
     Dates: start: 20140526
  5. IBU [Concomitant]
     Active Substance: IBUPROFEN
     Dates: start: 20140819
  6. PRIVIGEN [Suspect]
     Active Substance: HUMAN IMMUNOGLOBULIN G
     Indication: IMMUNODEFICIENCY
     Route: 042
     Dates: start: 20140526
  7. IBU [Concomitant]
     Active Substance: IBUPROFEN
     Indication: PREMEDICATION
     Dates: start: 20140722
  8. PRIVIGEN [Suspect]
     Active Substance: HUMAN IMMUNOGLOBULIN G
     Route: 042
     Dates: start: 20140819
  9. IBU [Concomitant]
     Active Substance: IBUPROFEN
     Dates: start: 20141020
  10. PRIVIGEN [Suspect]
     Active Substance: HUMAN IMMUNOGLOBULIN G
     Route: 042
     Dates: start: 20140624

REACTIONS (24)
  - Pain in extremity [Recovered/Resolved]
  - Spinal pain [Recovered/Resolved]
  - Abdominal pain [Recovered/Resolved]
  - Headache [Recovered/Resolved]
  - Chills [Recovered/Resolved]
  - Headache [Recovered/Resolved]
  - Headache [Recovered/Resolved]
  - Musculoskeletal stiffness [Recovered/Resolved]
  - Headache [Recovered/Resolved]
  - Hypotonia [Recovered/Resolved]
  - Fatigue [Recovered/Resolved]
  - Fatigue [Recovered/Resolved]
  - Pain in extremity [Recovered/Resolved]
  - Sleep disorder [Recovered/Resolved]
  - Pain in extremity [Recovered/Resolved]
  - Fatigue [Recovered/Resolved]
  - Nausea [Recovered/Resolved]
  - Meningitis [Recovered/Resolved]
  - Spinal pain [Recovered/Resolved]
  - Myalgia [Recovered/Resolved]
  - Headache [Recovered/Resolved]
  - Wound [Recovered/Resolved]
  - Headache [Recovered/Resolved]
  - Fatigue [Recovered/Resolved]

NARRATIVE: CASE EVENT DATE: 2014
